FAERS Safety Report 4868183-7 (Version None)
Quarter: 2005Q4

REPORT INFORMATION
  Report Type: 
  Country: None (occurrence: None)
  Receive Date: 20051229
  Receipt Date: 20051221
  Transmission Date: 20060501
  Serious: Yes (Death, Hospitalization, Other)
  Sender: FDA-Public Use
  Company Number: US-AVENTIS-200521275GDDC

PATIENT
  Age: 64 Year
  Sex: Male
  Weight: 34.47 kg

DRUGS (11)
  1. TAXOTERE [Suspect]
     Indication: METASTATIC GASTRIC CANCER
     Route: 041
     Dates: start: 20051116, end: 20051213
  2. TAXOTERE [Suspect]
     Indication: DYSPHAGIA
     Route: 041
     Dates: start: 20051116, end: 20051213
  3. OXALIPLATIN [Suspect]
     Indication: METASTATIC GASTRIC CANCER
     Route: 041
     Dates: start: 20051116, end: 20051213
  4. OXALIPLATIN [Suspect]
     Indication: DYSPHAGIA
     Route: 041
     Dates: start: 20051116, end: 20051213
  5. FUDR [Suspect]
     Indication: METASTATIC GASTRIC CANCER
     Dates: start: 20051116, end: 20051213
  6. FUDR [Suspect]
     Indication: DYSPHAGIA
     Dates: start: 20051116, end: 20051213
  7. LEUCOVORIN CALCIUM [Suspect]
     Indication: METASTATIC GASTRIC CANCER
     Dates: start: 20051116, end: 20051213
  8. LEUCOVORIN CALCIUM [Suspect]
     Indication: DYSPHAGIA
     Dates: start: 20051116, end: 20051213
  9. ALL OTHER THERAPEUTIC PRODUCTS [Concomitant]
     Dosage: DOSE: UNK
  10. ANTIEMETICS AND ANTINAUSEANTS [Concomitant]
     Dosage: DOSE: UNK
  11. OTHER ANTIDIARRHOEALS [Concomitant]
     Dosage: DOSE: UNK

REACTIONS (6)
  - ABDOMINAL PAIN [None]
  - ANOREXIA [None]
  - BLOOD PRESSURE DECREASED [None]
  - DEATH [None]
  - GASTROOESOPHAGEAL REFLUX DISEASE [None]
  - GENERAL PHYSICAL HEALTH DETERIORATION [None]
